FAERS Safety Report 6319159-4 (Version None)
Quarter: 2009Q3

REPORT INFORMATION
  Report Type: 
  Country: None (occurrence: None)
  Receive Date: 20090821
  Receipt Date: 20080811
  Transmission Date: 20100115
  Serious: No
  Sender: FDA-Public Use
  Company Number: US-ABBOTT-08P-163-0469578-00

PATIENT
  Sex: Female
  Weight: 81.72 kg

DRUGS (7)
  1. NIASPAN [Suspect]
     Indication: BLOOD CHOLESTEROL INCREASED
     Route: 048
     Dates: start: 20080801, end: 20080811
  2. NIASPAN [Suspect]
     Route: 048
     Dates: start: 20080702, end: 20080801
  3. LEDITHROID [Concomitant]
     Indication: THYROID DISORDER
     Route: 048
     Dates: start: 20030101
  4. ESOMEPRAZOLE MAGNESIUM [Concomitant]
     Indication: GASTROOESOPHAGEAL REFLUX DISEASE
     Route: 048
     Dates: start: 20020101
  5. SIMVASTATIN [Concomitant]
     Indication: BLOOD CHOLESTEROL
     Route: 048
     Dates: start: 20080201
  6. DYAZIDE [Concomitant]
     Indication: OEDEMA PERIPHERAL
     Dosage: 37.5 / 25 MG
     Route: 048
     Dates: start: 20020101
  7. ASPIRIN [Concomitant]
     Indication: PROPHYLAXIS
     Route: 048

REACTIONS (2)
  - PRURITUS [None]
  - RASH [None]
